FAERS Safety Report 7206186-8 (Version None)
Quarter: 2010Q4

REPORT INFORMATION
  Report Type: 
  Country: None (occurrence: None)
  Receive Date: 20101217
  Receipt Date: 20101203
  Transmission Date: 20110411
  Serious: Yes (Hospitalization)
  Sender: FDA-Public Use
  Company Number: 018472

PATIENT
  Sex: Female

DRUGS (18)
  1. CERTOLIZUMAB PEGOL (CERTOLIZUMAB PEGOL) [Suspect]
     Indication: RHEUMATOID ARTHRITIS
     Dosage: SEE IMAGE
     Route: 058
     Dates: start: 20090723, end: 20090101
  2. CERTOLIZUMAB PEGOL (CERTOLIZUMAB PEGOL) [Suspect]
     Indication: RHEUMATOID ARTHRITIS
     Dosage: SEE IMAGE
     Route: 058
     Dates: start: 20100101, end: 20100121
  3. CERTOLIZUMAB PEGOL (CERTOLIZUMAB PEGOL) [Suspect]
     Indication: RHEUMATOID ARTHRITIS
     Dosage: SEE IMAGE
     Route: 058
     Dates: start: 20100204, end: 20100819
  4. FAMOTIDINE [Concomitant]
  5. PREDNISOLONE [Concomitant]
  6. REBAMAPIDE [Concomitant]
  7. DICLOFENAC SODIUM [Concomitant]
  8. SALAZOSULFAPYRIDINE [Concomitant]
  9. ALENDRONATE SODIUM [Concomitant]
  10. ELCATONIN [Concomitant]
  11. HEPARIN [Concomitant]
  12. DEXAMETHASONE DIPROPIONATE [Concomitant]
  13. LEVOMENTHOL [Concomitant]
  14. FEXOFENADINE HCL [Concomitant]
  15. AROTINOLOL HYDROCHLORIDE [Concomitant]
  16. CANDESARTAN CILEXETIL [Concomitant]
  17. INDOMETACIN [Concomitant]
  18. BETAMETHASONE VALERATE [Concomitant]

REACTIONS (2)
  - DIFFUSE LARGE B-CELL LYMPHOMA [None]
  - GASTRIC ULCER HAEMORRHAGE [None]
